FAERS Safety Report 6015124-5 (Version None)
Quarter: 2008Q4

REPORT INFORMATION
  Report Type: 
  Country: None (occurrence: None)
  Receive Date: 20081222
  Receipt Date: 20081120
  Transmission Date: 20090506
  Serious: No
  Sender: FDA-Public Use
  Company Number: US-BAYER-200832160NA

PATIENT
  Age: 21 Year
  Sex: Female

DRUGS (1)
  1. AVELOX [Suspect]
     Indication: SINUSITIS

REACTIONS (4)
  - ANXIETY [None]
  - NERVOUSNESS [None]
  - PALPITATIONS [None]
  - TACHYCARDIA [None]
